FAERS Safety Report 7326473-2 (Version None)
Quarter: 2011Q1

REPORT INFORMATION
  Report Type: 
  Country: None (occurrence: None)
  Receive Date: 20110218
  Receipt Date: 20110202
  Transmission Date: 20110831
  Serious: Yes (Hospitalization)
  Sender: FDA-Public Use
  Company Number: 2011MA001057

PATIENT
  Age: 39 Year

DRUGS (4)
  1. MEPROBAMATE [Suspect]
     Dosage: 4 G;
  2. ACEBUTOLOL [Suspect]
     Dosage: 10 G
  3. ASPIRIN [Suspect]
     Dosage: 15 G
  4. ALPRAZOLAM [Suspect]
     Dosage: 10 MG

REACTIONS (5)
  - SEPTIC SHOCK [None]
  - APPLICATION SITE BLEEDING [None]
  - PERIPHERAL ISCHAEMIA [None]
  - THROMBOSIS [None]
  - BRAIN DEATH [None]
